FAERS Safety Report 5441966-0 (Version None)
Quarter: 2007Q3

REPORT INFORMATION
  Report Type: 
  Country: None (occurrence: None)
  Receive Date: 20070904
  Receipt Date: 20070828
  Transmission Date: 20080115
  Serious: Yes (Other)
  Sender: FDA-Public Use
  Company Number: B0479003A

PATIENT
  Age: 17 Year
  Sex: Male

DRUGS (27)
  1. PAXIL [Suspect]
     Indication: DEPRESSION
     Route: 048
     Dates: start: 20061021, end: 20061216
  2. CARBAMAZEPINE [Concomitant]
     Dosage: 300MG PER DAY
     Dates: start: 20061216
  3. FLUVOXAMINE MALEATE [Concomitant]
     Route: 065
     Dates: start: 20070214
  4. AMOXAPINE [Concomitant]
     Dosage: 40MG PER DAY
     Dates: start: 20070612, end: 20070616
  5. RISPERIDONE [Concomitant]
     Route: 065
     Dates: start: 20061228
  6. ALPRAZOLAM [Concomitant]
     Route: 065
     Dates: start: 20061228
  7. TOLEDOMIN [Concomitant]
     Indication: DEPRESSION
     Dosage: 45MG UNKNOWN
     Route: 048
     Dates: start: 20060922, end: 20061103
  8. DEPAS [Concomitant]
     Indication: DEPRESSION
     Dosage: 1.5MG UNKNOWN
     Route: 048
     Dates: start: 20060922, end: 20061103
  9. ZOLPIDEM [Concomitant]
     Indication: INSOMNIA
     Route: 048
     Dates: start: 20060922, end: 20070611
  10. MEILAX [Concomitant]
     Indication: DEPRESSION
     Dosage: 2MG UNKNOWN
     Route: 048
     Dates: start: 20061104, end: 20061201
  11. CLONAZEPAM [Concomitant]
     Indication: ANXIETY
     Route: 048
     Dates: start: 20061104, end: 20061226
  12. UNKNOWN DRUG [Concomitant]
     Indication: ANXIETY
     Route: 048
     Dates: start: 20061104, end: 20061226
  13. RISPERDAL [Concomitant]
     Route: 048
     Dates: start: 20061227, end: 20070501
  14. AKINETON [Concomitant]
     Indication: PARKINSONISM
     Route: 048
     Dates: start: 20061227
  15. ALPRAZOLAM [Concomitant]
     Indication: ANXIETY
     Dosage: .8MG UNKNOWN
     Route: 048
     Dates: start: 20061227, end: 20070213
  16. LUVOX [Concomitant]
     Indication: DEPRESSION
     Route: 048
     Dates: start: 20070214
  17. LORAZEPAM [Concomitant]
     Dosage: 1.5MG UNKNOWN
     Route: 048
     Dates: start: 20070214, end: 20070611
  18. ESTAZOLAM [Concomitant]
     Indication: INSOMNIA
     Route: 048
     Dates: start: 20070214
  19. GRAMALIL [Concomitant]
     Indication: AGITATION
     Route: 048
     Dates: start: 20070511
  20. AMOXAN [Concomitant]
     Indication: DEPRESSION
     Route: 048
     Dates: start: 20070612, end: 20070615
  21. CLONAZEPAM [Concomitant]
     Dosage: 1.5MG UNKNOWN
     Route: 048
     Dates: start: 20070612
  22. DEPAKENE [Concomitant]
     Route: 048
     Dates: start: 20070612, end: 20070624
  23. HALCION [Concomitant]
     Indication: INSOMNIA
     Dosage: .25MG UNKNOWN
     Route: 048
     Dates: start: 20070612
  24. EVAMYL [Concomitant]
     Indication: INSOMNIA
     Dosage: 2MG UNKNOWN
     Route: 048
     Dates: start: 20070612, end: 20070624
  25. SERENACE [Concomitant]
     Dosage: 6MG UNKNOWN
     Route: 048
     Dates: start: 20070625, end: 20070711
  26. ARTANE [Concomitant]
     Indication: PARKINSONISM
     Dosage: 6MG UNKNOWN
     Route: 048
     Dates: start: 20070625, end: 20070711
  27. SEROQUEL [Concomitant]
     Dosage: 75MG UNKNOWN
     Route: 048
     Dates: start: 20070712

REACTIONS (7)
  - AGGRESSION [None]
  - DEPRESSION [None]
  - HEAD INJURY [None]
  - HOMICIDAL IDEATION [None]
  - MENTAL IMPAIRMENT [None]
  - PSYCHOMOTOR HYPERACTIVITY [None]
  - SELF INJURIOUS BEHAVIOUR [None]
